FAERS Safety Report 21598107 (Version 1)
Quarter: 2022Q4

REPORT INFORMATION
  Report Type: Spontaneous
  Country: US (occurrence: None)
  Receive Date: 20221114
  Receipt Date: 20221114
  Transmission Date: 20230112
  Serious: Yes (Other)
  Sender: FDA-Public Use
  Company Number: None

PATIENT
  Sex: Male

DRUGS (1)
  1. RISPERIDONE [Suspect]
     Active Substance: RISPERIDONE

REACTIONS (6)
  - Galactorrhoea [None]
  - Vomiting [None]
  - Drooling [None]
  - Tardive dyskinesia [None]
  - Swelling face [None]
  - Fatigue [None]
